FAERS Safety Report 4758976-9 (Version None)
Quarter: 2005Q3

REPORT INFORMATION
  Report Type: 
  Country: None (occurrence: None)
  Receive Date: 20050826
  Receipt Date: 20050812
  Transmission Date: 20060218
  Serious: Yes (Other)
  Sender: FDA-Public Use
  Company Number: 2005114905

PATIENT
  Sex: Female
  Weight: 58.9676 kg

DRUGS (2)
  1. BENADRYL [Suspect]
     Indication: INSOMNIA
     Dosage: 50 MG DAILY, ORAL
     Route: 048
     Dates: start: 20050101, end: 20050101
  2. ESCITALOPRAM OXALATE [Concomitant]

REACTIONS (1)
  - ANGLE CLOSURE GLAUCOMA [None]
